FAERS Safety Report 4345657-9 (Version None)
Quarter: 2004Q2

REPORT INFORMATION
  Report Type: 
  Country: None (occurrence: None)
  Receive Date: 20040421
  Receipt Date: 20040407
  Transmission Date: 20050107
  Serious: Yes (Death)
  Sender: FDA-Public Use
  Company Number: USA-2003-0010756

PATIENT
  Age: 42 Year
  Sex: Male

DRUGS (7)
  1. MS CONTIN [Suspect]
     Indication: PAIN
     Dosage: 60 MG, Q12H
  2. MORPHINE SULFATE [Suspect]
     Indication: PAIN
  3. LASIX [Concomitant]
  4. DEPAKOTE [Concomitant]
  5. SYNTHROID [Concomitant]
  6. CELEXA [Concomitant]
  7. KLONOPIN [Concomitant]

REACTIONS (1)
  - ACUTE MYOCARDIAL INFARCTION [None]
